FAERS Safety Report 6825580-8 (Version None)
Quarter: 2010Q3

REPORT INFORMATION
  Report Type: 
  Country: None (occurrence: None)
  Receive Date: 20100708
  Receipt Date: 20070316
  Transmission Date: 20110219
  Serious: No
  Sender: FDA-Public Use
  Company Number: US-PFIZER INC-2006140251

PATIENT
  Sex: Female
  Weight: 89.36 kg

DRUGS (14)
  1. CHANTIX [Suspect]
     Indication: SMOKING CESSATION THERAPY
     Route: 048
     Dates: start: 20061101, end: 20061101
  2. CHANTIX [Interacting]
     Indication: TOBACCO ABUSE
  3. LAMICTAL [Interacting]
     Indication: BIPOLAR DISORDER
  4. LEXAPRO [Interacting]
     Indication: BIPOLAR DISORDER
  5. VERAPAMIL [Concomitant]
     Indication: HYPERTENSION
  6. BENICAR [Concomitant]
     Indication: HYPERTENSION
  7. DDAVP [Concomitant]
  8. MONTELUKAST SODIUM [Concomitant]
  9. ALLEGRA [Concomitant]
  10. FAMOTIDINE [Concomitant]
  11. PREMARIN [Concomitant]
  12. POTASSIUM CHLORIDE [Concomitant]
  13. THEOPHYLLINE [Concomitant]
  14. TIOTROPIUM BROMIDE [Concomitant]
     Route: 055

REACTIONS (6)
  - DRUG INTERACTION [None]
  - DYSGEUSIA [None]
  - FATIGUE [None]
  - HOT FLUSH [None]
  - PARAESTHESIA [None]
  - SOMNOLENCE [None]
